FAERS Safety Report 9100245 (Version 3)
Quarter: 2013Q2

REPORT INFORMATION
  Report Type: Spontaneous
  Country: GB (occurrence: GB)
  Receive Date: 20130215
  Receipt Date: 20130418
  Transmission Date: 20140414
  Serious: Yes (Other)
  Sender: FDA-Public Use
  Company Number: GB-PFIZER INC-2013057443

PATIENT
  Age: 80 Year
  Sex: Female

DRUGS (2)
  1. METHOTREXATE SODIUM [Suspect]
     Dosage: UNK
  2. SULFASALAZINE [Suspect]
     Dosage: UNK

REACTIONS (1)
  - Pancytopenia [Unknown]
